FAERS Safety Report 7909704-7 (Version None)
Quarter: 2011Q4

REPORT INFORMATION
  Report Type: 
  Country: None (occurrence: None)
  Receive Date: 20111111
  Receipt Date: 20111108
  Transmission Date: 20120403
  Serious: Yes (Other)
  Sender: FDA-Public Use
  Company Number: DE-GLAXOSMITHKLINE-D0073327A

PATIENT
  Sex: Female

DRUGS (1)
  1. TROBALT [Suspect]
     Indication: EPILEPSY
     Route: 048

REACTIONS (1)
  - EPILEPSY [None]
